FAERS Safety Report 7854270-8 (Version None)
Quarter: 2011Q3

REPORT INFORMATION
  Report Type: 
  Country: None (occurrence: None)
  Receive Date: 20110916
  Receipt Date: 20110201
  Transmission Date: 20111222
  Serious: Yes (Other)
  Sender: FDA-Public Use
  Company Number: 2011SP004861

PATIENT
  Age: 16 Year
  Sex: Female
  Weight: 59.8748 kg

DRUGS (1)
  1. IMPLANON [Suspect]
     Indication: CONTRACEPTION
     Dosage: SBDE
     Route: 059
     Dates: start: 20091101

REACTIONS (2)
  - MENSTRUATION IRREGULAR [None]
  - OVARIAN CYST [None]
